FAERS Safety Report 9897330 (Version 2)
Quarter: 2014Q1

REPORT INFORMATION
  Report Type: Spontaneous
  Country: IT (occurrence: IT)
  Receive Date: 20140214
  Receipt Date: 20140313
  Transmission Date: 20141002
  Serious: Yes (Death, Hospitalization)
  Sender: FDA-Public Use
  Company Number: IT-RANBAXY-2014RR-77912

PATIENT
  Age: 77 Year
  Sex: Male

DRUGS (11)
  1. AMOXICILLIN [Suspect]
     Indication: UPPER RESPIRATORY TRACT INFECTION
     Dosage: UNK
     Route: 065
     Dates: start: 20131203, end: 20131207
  2. SINTROM [Interacting]
     Indication: ATRIAL FIBRILLATION
     Dosage: 1 DF, PRN
     Route: 048
     Dates: start: 20120101, end: 20131209
  3. SUTENT [Concomitant]
     Indication: PRODUCT USED FOR UNKNOWN INDICATION
     Dosage: UNK
     Route: 065
     Dates: start: 20120101, end: 20131209
  4. OMNIC [Concomitant]
     Indication: PRODUCT USED FOR UNKNOWN INDICATION
     Dosage: UNK
     Route: 065
     Dates: start: 20120101, end: 20131209
  5. PARIET [Concomitant]
     Indication: PRODUCT USED FOR UNKNOWN INDICATION
     Dosage: UNK
     Route: 065
     Dates: start: 20120101, end: 20131209
  6. DELTACORTENE [Concomitant]
     Indication: PRODUCT USED FOR UNKNOWN INDICATION
     Dosage: UNK
     Route: 065
     Dates: start: 20120101, end: 20131209
  7. CONTRAMAL [Concomitant]
     Indication: PRODUCT USED FOR UNKNOWN INDICATION
     Dosage: UNK
     Route: 065
     Dates: start: 20120101, end: 20131209
  8. LANOXIN [Concomitant]
     Indication: PRODUCT USED FOR UNKNOWN INDICATION
     Dosage: UNK
     Route: 042
  9. CLEXANE [Concomitant]
     Indication: ANTICOAGULANT THERAPY
     Dosage: UNK
     Route: 065
  10. LASIX [Concomitant]
     Indication: DIURETIC THERAPY
     Dosage: 2 VIALS
     Route: 042
  11. FENTANEST [Concomitant]
     Indication: ABDOMINAL PAIN UPPER
     Dosage: 1 VIAL
     Route: 042

REACTIONS (3)
  - Drug interaction [Recovering/Resolving]
  - Haematemesis [Recovering/Resolving]
  - Hypocoagulable state [Recovering/Resolving]
